FAERS Safety Report 4351241-3 (Version None)
Quarter: 2004Q2

REPORT INFORMATION
  Report Type: 
  Country: None (occurrence: None)
  Receive Date: 20040428
  Receipt Date: 20040409
  Transmission Date: 20050107
  Serious: No
  Sender: FDA-Public Use
  Company Number: USA040362435

PATIENT
  Age: 72 Year
  Sex: Female

DRUGS (1)
  1. FORTEO [Suspect]
     Indication: OSTEOPOROSIS
     Dates: start: 20040115

REACTIONS (6)
  - BLOOD URIC ACID ABNORMAL [None]
  - ELECTROPHORESIS PROTEIN ABNORMAL [None]
  - IMMUNE SYSTEM DISORDER [None]
  - MULTIPLE MYELOMA [None]
  - PROTEIN TOTAL ABNORMAL [None]
  - URINE ELECTROPHORESIS ABNORMAL [None]
